FAERS Safety Report 7862592-X (Version None)
Quarter: 2011Q4

REPORT INFORMATION
  Report Type: 
  Country: None (occurrence: None)
  Receive Date: 20111026
  Receipt Date: 20111012
  Transmission Date: 20120403
  Serious: Yes (Hospitalization)
  Sender: FDA-Public Use
  Company Number: 1000024876

PATIENT
  Age: 52 Year
  Sex: Female

DRUGS (6)
  1. DIHYDROCODEINE BITARTRATE INJ [Suspect]
     Dosage: OVERDOSEL 840 MG, ORAL
     Route: 048
  2. DIAZEPAM [Suspect]
     Dosage: OVERDOSE: 35 MG, ORAL
     Route: 048
  3. DILTIAZEM [Suspect]
     Dosage: OVERDOSE: 1680 MG, ORAL
     Route: 048
  4. AMITRIPTYLINE HCL [Suspect]
     Dosage: OVERDOSE: 350 MG, ORAL
     Route: 048
  5. TEMAZEPAM [Suspect]
     Dosage: OVERDOSE: 70 MG, ORAL
     Route: 048
  6. CITALOPRAM HYDROBROMIDE [Suspect]
     Dosage: OVERDOSE: 70 MG, ORAL
     Route: 048

REACTIONS (7)
  - COMA SCALE ABNORMAL [None]
  - HEART RATE DECREASED [None]
  - INTENTIONAL OVERDOSE [None]
  - BLOOD PRESSURE DECREASED [None]
  - PNEUMONIA ASPIRATION [None]
  - ATRIOVENTRICULAR BLOCK COMPLETE [None]
  - RESPIRATORY RATE DECREASED [None]
